FAERS Safety Report 8495286-0 (Version None)
Quarter: 2012Q3

REPORT INFORMATION
  Report Type: 
  Country: None (occurrence: None)
  Receive Date: 20120702
  Receipt Date: 20120702
  Transmission Date: 20120928
  Serious: Yes (Death)
  Sender: FDA-Public Use
  Company Number: None

PATIENT
  Age: 49 Month
  Sex: Male
  Weight: 86.1834 kg

DRUGS (2)
  1. PAXIL [Suspect]
     Dates: start: 20120209, end: 20120216
  2. AMBIEN [Suspect]
     Dates: start: 20120209, end: 20120216

REACTIONS (3)
  - INSOMNIA [None]
  - LETHARGY [None]
  - COMPLETED SUICIDE [None]
